FAERS Safety Report 12506274 (Version 1)
Quarter: 2016Q2

REPORT INFORMATION
  Report Type: Spontaneous
  Country: MY (occurrence: MY)
  Receive Date: 20160628
  Receipt Date: 20160628
  Transmission Date: 20160815
  Serious: Yes (Death, Other)
  Sender: FDA-Public Use
  Company Number: MY-ABBVIE-16P-101-1663335-00

PATIENT
  Age: 12 Year
  Sex: Male

DRUGS (1)
  1. SODIUM VALPROATE [Suspect]
     Active Substance: VALPROATE SODIUM
     Indication: PRODUCT USED FOR UNKNOWN INDICATION
     Route: 065

REACTIONS (6)
  - Somnolence [Fatal]
  - Renal failure [Fatal]
  - Rash erythematous [Fatal]
  - Hepatic failure [Fatal]
  - Pyrexia [Fatal]
  - Jaundice [Fatal]
